FAERS Safety Report 4844619-2 (Version None)
Quarter: 2005Q4

REPORT INFORMATION
  Report Type: 
  Country: None (occurrence: None)
  Receive Date: 20051125
  Receipt Date: 20051115
  Transmission Date: 20060501
  Serious: Yes (Other)
  Sender: FDA-Public Use
  Company Number: HQWYE579016NOV05

PATIENT
  Age: 83 Year
  Sex: Female

DRUGS (5)
  1. CORDARONE [Suspect]
     Indication: ATRIAL FIBRILLATION
     Dosage: 900 MG 1X PER 1 DAY, INTRAVENOUS
     Route: 042
  2. SIMVASTATIN [Suspect]
     Indication: MYOCARDIAL INFARCTION
     Dosage: 20 MG 1X PER 1 DAY, ORAL
     Route: 048
     Dates: start: 20050907, end: 20050909
  3. OMEPRAZOLE [Concomitant]
  4. CLOPIDOGREL          (CLOPIDOGREL) [Concomitant]
  5. RAMIPRIL [Concomitant]

REACTIONS (1)
  - HEPATITIS ACUTE [None]
